FAERS Safety Report 24318646 (Version 2)
Quarter: 2024Q4

REPORT INFORMATION
  Report Type: Spontaneous
  Country: US (occurrence: US)
  Receive Date: 20240913
  Receipt Date: 20241007
  Transmission Date: 20250114
  Serious: Yes (Disabling, Other)
  Sender: APELLIS PHARMACEUTICALS
  Company Number: US-APELLIS-2024-APL-0000980

PATIENT
  Weight: 85.5 kg

DRUGS (12)
  1. SYFOVRE [Suspect]
     Active Substance: PEGCETACOPLAN
     Indication: Dry age-related macular degeneration
     Dosage: ONE INJECTION
     Dates: start: 20230613, end: 20230818
  2. GABAPENTIN [Concomitant]
     Active Substance: GABAPENTIN
     Indication: Product used for unknown indication
     Dosage: 300MG CAP
     Dates: start: 20240228, end: 20240304
  3. ATORVASTATIN CALCIUM [Concomitant]
     Active Substance: ATORVASTATIN CALCIUM
     Indication: Blood cholesterol
     Dosage: TAKE ONE TABLET BY MOUTH EVERY EVENING
     Route: 048
  4. CLOPIDOGREL BISULFATE [Concomitant]
     Active Substance: CLOPIDOGREL BISULFATE
     Indication: Anticoagulant therapy
     Dosage: 75MG TAB TAKE ONE TABLET BY MOUTH ONCE A DAY
     Route: 048
  5. ASPIRIN [Concomitant]
     Active Substance: ASPIRIN
     Indication: Product used for unknown indication
  6. HYDROCHLOROTHIAZIDE [Concomitant]
     Active Substance: HYDROCHLOROTHIAZIDE
     Indication: Blood pressure measurement
     Dosage: TAKE ONE TABLET BY MOUTH ONCE A DAY
     Route: 048
     Dates: start: 20240228, end: 20240301
  7. VITAMIN D [Concomitant]
     Active Substance: VITAMIN D NOS
     Indication: Product used for unknown indication
  8. EZETIMIBE [Concomitant]
     Active Substance: EZETIMIBE
     Indication: Blood cholesterol increased
     Dosage: TAKE ONE TABLET BY MOUTH ONCE A DAY
     Route: 048
  9. AMLODIPINE BESYLATE [Concomitant]
     Active Substance: AMLODIPINE BESYLATE
     Indication: Blood pressure measurement
     Dosage: 10MG TAB  TAKE ONE TABLET BY?MOUTH ONCE A DAY
     Route: 048
  10. ALLOPURINOL [Concomitant]
     Active Substance: ALLOPURINOL
     Indication: Gout
     Dosage: TAKE TWO TABLETS BY MOUTH ONCE A DAY
     Route: 048
     Dates: start: 20240228, end: 20240301
  11. DULOXETINE HYDROCHLORIDE [Concomitant]
     Active Substance: DULOXETINE HYDROCHLORIDE
     Indication: Depression
     Dosage: TAKE ONE CAPSULE BY MOUTH ONCE A DAY
     Route: 048
  12. MINERALS\VITAMINS [Concomitant]
     Active Substance: MINERALS\VITAMINS
     Indication: Product used for unknown indication
     Dosage: TAKE 1 CAP/TAB BY MOUTH TWICE A DAY WITH MEAL(S)
     Route: 048

REACTIONS (10)
  - Vitreous haemorrhage [Unknown]
  - Retinal artery thrombosis [Unknown]
  - Ocular hyperaemia [Unknown]
  - Eyelid ptosis [Unknown]
  - Loss of personal independence in daily activities [Unknown]
  - Eye pain [Unknown]
  - Product use complaint [Unknown]
  - Visual impairment [Unknown]
  - Impaired driving ability [Unknown]
  - Ocular discomfort [Unknown]

NARRATIVE: CASE EVENT DATE: 20230818
